FAERS Safety Report 9744564 (Version 1)
Quarter: 2013Q4

REPORT INFORMATION
  Report Type: Spontaneous
  Country: US (occurrence: US)
  Receive Date: 20131210
  Receipt Date: 20131210
  Transmission Date: 20140711
  Serious: Yes (Hospitalization, Other)
  Sender: FDA-Public Use
  Company Number: US-BAXTER-2013BAX048597

PATIENT
  Age: 19 Year
  Sex: Female

DRUGS (10)
  1. VANCOMYCIN INJECTION, USP [Suspect]
     Indication: PNEUMONIA
     Route: 065
  2. CEFTAZIDIME [Suspect]
     Indication: PNEUMONIA
     Route: 065
  3. RIFAMPICIN [Concomitant]
     Indication: PNEUMONIA
     Route: 051
  4. COTRIMOXAZOLE [Concomitant]
     Indication: PNEUMONIA
     Route: 051
  5. MOXIFLOXACIN [Concomitant]
     Indication: PNEUMONIA
     Route: 051
  6. AZITHROMYCIN [Concomitant]
     Indication: PRODUCT USED FOR UNKNOWN INDICATION
     Route: 065
  7. BUDESONIDE [Concomitant]
     Indication: PRODUCT USED FOR UNKNOWN INDICATION
     Route: 048
  8. INSULIN [Concomitant]
     Indication: PRODUCT USED FOR UNKNOWN INDICATION
     Route: 065
  9. TOBRAMYCIN [Concomitant]
     Indication: PRODUCT USED FOR UNKNOWN INDICATION
     Route: 065
  10. BUDESONIDE/FORMOTEROL [Concomitant]
     Indication: PRODUCT USED FOR UNKNOWN INDICATION

REACTIONS (4)
  - Acute respiratory distress syndrome [Recovering/Resolving]
  - Pyrexia [Recovered/Resolved]
  - Renal failure acute [Recovered/Resolved]
  - Drug ineffective [Not Recovered/Not Resolved]
